FAERS Safety Report 8990661 (Version 1)
Quarter: 2012Q4

REPORT INFORMATION
  Report Type: 
  Country: JP (occurrence: JP)
  Receive Date: 20121228
  Receipt Date: 20121228
  Transmission Date: 20130627
  Serious: Yes (Other)
  Sender: FDA-Public Use
  Company Number: JP-009507513-1112USA03144

PATIENT
  Age: 29 Year
  Sex: Female

DRUGS (1)
  1. FOSAMAC TABLETS 35MG [Suspect]
     Dosage: UNK UNK, qd
     Route: 048
     Dates: start: 200904, end: 200906

REACTIONS (1)
  - Erythema multiforme [Unknown]
